FAERS Safety Report 8678917 (Version 5)
Quarter: 2013Q3

REPORT INFORMATION
  Report Type: Spontaneous
  Country: JP (occurrence: JP)
  Receive Date: 20120723
  Receipt Date: 20130702
  Transmission Date: 20140515
  Serious: Yes (Hospitalization, Disabling)
  Sender: FDA-Public Use
  Company Number: JP-GLAXOSMITHKLINE-B0816030A

PATIENT
  Age: 83 Year
  Sex: Male
  Weight: 57 kg

DRUGS (2)
  1. VALTREX [Suspect]
     Indication: HERPES ZOSTER
     Dosage: 1000MG THREE TIMES PER DAY
     Route: 048
     Dates: start: 20120710
  2. LOXOPROFEN [Concomitant]
     Route: 048

REACTIONS (17)
  - Encephalopathy [Recovered/Resolved]
  - Renal disorder [Not Recovered/Not Resolved]
  - Depressed level of consciousness [Recovering/Resolving]
  - Urine output decreased [Unknown]
  - Chromaturia [Unknown]
  - Dyskinesia [Unknown]
  - Blood creatinine increased [Unknown]
  - Blood urea increased [Unknown]
  - White blood cell count increased [Unknown]
  - C-reactive protein increased [Unknown]
  - Sepsis [Unknown]
  - Haematuria [Unknown]
  - Gait disturbance [Unknown]
  - Dysarthria [Unknown]
  - Thalamus haemorrhage [Unknown]
  - Renal failure acute [Unknown]
  - Anuria [Unknown]
